FAERS Safety Report 10139106 (Version 2)
Quarter: 2014Q2

REPORT INFORMATION
  Report Type: Spontaneous
  Country: US (occurrence: US)
  Receive Date: 20140429
  Receipt Date: 20140516
  Transmission Date: 20141212
  Serious: No
  Sender: FDA-Public Use
  Company Number: US-PFIZER INC-2014117532

PATIENT
  Age: 64 Year
  Sex: Female
  Weight: 131.52 kg

DRUGS (22)
  1. XELJANZ [Suspect]
     Indication: RHEUMATOID ARTHRITIS
     Dosage: 5 MG, 2X/DAY
     Route: 048
     Dates: start: 201310
  2. XELJANZ [Suspect]
     Indication: BLOOD GLUCOSE INCREASED
  3. XELJANZ [Suspect]
     Indication: PYREXIA
  4. PREDNISONE [Concomitant]
     Dosage: UNK
     Dates: end: 201402
  5. ACYCLOVIR [Concomitant]
     Dosage: UNK
  6. TORSEMIDE [Concomitant]
     Dosage: UNK
  7. POTASSIUM CHLORIDE [Concomitant]
     Dosage: UNK
  8. OMEPRAZOLE [Concomitant]
     Dosage: UNK
  9. METOPROLOL [Concomitant]
     Dosage: UNK
  10. METHOTREXATE [Concomitant]
     Dosage: UNK
  11. VICODIN [Concomitant]
     Dosage: UNK
  12. FOLIC ACID [Concomitant]
     Dosage: UNK
  13. FERROUS SULFATE [Concomitant]
     Dosage: UNK
  14. ENALAPRIL [Concomitant]
     Dosage: UNK
  15. DOXAZOSIN [Concomitant]
     Dosage: UNK
  16. COUMADIN [Concomitant]
     Dosage: UNK
  17. VITAMIN B12 [Concomitant]
     Dosage: UNK
  18. KLONOPIN [Concomitant]
     Dosage: UNK
  19. CALCIUM + VIT D [Concomitant]
     Dosage: UNK
  20. ASPIRIN [Concomitant]
     Dosage: UNK
  21. ALENDRONATE [Concomitant]
     Dosage: UNK
  22. VITAMIN D3 [Concomitant]
     Dosage: UNK

REACTIONS (3)
  - Pyrexia [Not Recovered/Not Resolved]
  - Blood glucose increased [Not Recovered/Not Resolved]
  - Chills [Unknown]
